FAERS Safety Report 22988609 (Version 7)
Quarter: 2023Q4

REPORT INFORMATION
  Report Type: Report from Study
  Country: GB (occurrence: GB)
  Receive Date: 20230926
  Receipt Date: 20231208
  Transmission Date: 20240109
  Serious: Yes (Other)
  Sender: FDA-Public Use
  Company Number: GB-ARGENX-2023-ARGX-GB001464

PATIENT

DRUGS (2)
  1. EFGARTIGIMOD ALFA [Suspect]
     Active Substance: EFGARTIGIMOD ALFA
     Indication: Myasthenia gravis
     Dosage: UNK
     Dates: start: 202303
  2. EFGARTIGIMOD ALFA [Suspect]
     Active Substance: EFGARTIGIMOD ALFA
     Dosage: 400 MG VIAL (20 MG/ML) CONCENTRATE
     Route: 058

REACTIONS (9)
  - Choking [Unknown]
  - Fatigue [Unknown]
  - Myasthenia gravis [Unknown]
  - General physical health deterioration [Unknown]
  - Sensation of foreign body [Unknown]
  - Emotional disorder [Unknown]
  - Headache [Unknown]
  - Pruritus [Recovered/Resolved]
  - Fatigue [Unknown]

NARRATIVE: CASE EVENT DATE: 20230509
